FAERS Safety Report 10710062 (Version 1)
Quarter: 2015Q1

REPORT INFORMATION
  Report Type: Spontaneous
  Country: US (occurrence: US)
  Receive Date: 20150114
  Receipt Date: 20150114
  Transmission Date: 20150721
  Serious: Yes (Death, Hospitalization)
  Sender: FDA-Public Use
  Company Number: US-ASTRAZENECA-2015SE02039

PATIENT
  Age: 48 Year
  Sex: Female

DRUGS (4)
  1. QUETIAPINE [Suspect]
     Active Substance: QUETIAPINE
     Route: 048
  2. MORPHINE [Suspect]
     Active Substance: MORPHINE
     Route: 048
  3. TRAMADOL [Suspect]
     Active Substance: TRAMADOL
     Route: 048
  4. COCAINE [Suspect]
     Active Substance: COCAINE
     Route: 048

REACTIONS (3)
  - Completed suicide [Fatal]
  - Cardio-respiratory arrest [Fatal]
  - Toxicity to various agents [Fatal]
